FAERS Safety Report 23428105 (Version 1)
Quarter: 2024Q1

REPORT INFORMATION
  Report Type: Report from Study
  Country: US (occurrence: US)
  Receive Date: 20240122
  Receipt Date: 20240122
  Transmission Date: 20240410
  Serious: Yes (Other)
  Sender: FDA-Public Use
  Company Number: US-ABBVIE-4721717

PATIENT
  Sex: Female

DRUGS (4)
  1. RINVOQ [Suspect]
     Active Substance: UPADACITINIB
     Indication: Ankylosing spondylitis
     Dosage: FORM STRENGTH: 15  MG, LAST ADMIN DATE 2023
     Route: 048
     Dates: start: 20230302
  2. RINVOQ [Suspect]
     Active Substance: UPADACITINIB
     Indication: Ankylosing spondylitis
     Dosage: FORM STRENGTH: 15  MG, LAST ADMIN DATE 2023
     Route: 048
     Dates: start: 20230302
  3. RINVOQ [Suspect]
     Active Substance: UPADACITINIB
     Indication: Ankylosing spondylitis
     Dosage: FORM STRENGTH: 15  MG, LAST ADMIN DATE 2023
     Route: 048
     Dates: start: 20230203
  4. RINVOQ [Suspect]
     Active Substance: UPADACITINIB
     Indication: Ankylosing spondylitis
     Dosage: FORM STRENGTH: 15  MG
     Route: 048
     Dates: start: 2023

REACTIONS (8)
  - Systemic lupus erythematosus [Unknown]
  - Loss of personal independence in daily activities [Not Recovered/Not Resolved]
  - Joint range of motion decreased [Not Recovered/Not Resolved]
  - Mobility decreased [Not Recovered/Not Resolved]
  - Skin laceration [Unknown]
  - Ankylosing spondylitis [Recovering/Resolving]
  - Arthralgia [Not Recovered/Not Resolved]
  - Joint swelling [Not Recovered/Not Resolved]

NARRATIVE: CASE EVENT DATE: 20230101
